FAERS Safety Report 5664393-X (Version None)
Quarter: 2008Q1

REPORT INFORMATION
  Report Type: 
  Country: None (occurrence: None)
  Receive Date: 20080312
  Receipt Date: 20080211
  Transmission Date: 20080703
  Serious: Yes (Other)
  Sender: FDA-Public Use
  Company Number: 200713245BCC

PATIENT
  Age: 61 Year
  Sex: Female
  Weight: 77.1115 kg

DRUGS (12)
  1. MULTIVITAMIN [Suspect]
     Indication: SUPPLEMENTATION THERAPY
     Dosage: 1 DF, QD, ORAL
     Route: 048
     Dates: start: 20071001, end: 20071003
  2. ASPIRIN [Suspect]
     Indication: DRUG USE FOR UNKNOWN INDICATION
     Dosage: 81 MG, QD, ORAL
     Route: 048
     Dates: start: 20071001
  3. FORADIL [Concomitant]
  4. SPIRIVA [Concomitant]
  5. SEREVENT [Concomitant]
  6. ALBUTEROL [Concomitant]
  7. CALCIUM [Concomitant]
  8. METFORMIN HCL [Concomitant]
  9. SIMVASTATIN [Concomitant]
  10. GLIMEPIRIDE [Concomitant]
  11. LISINOPRIL [Concomitant]
  12. FLOVENT [Concomitant]

REACTIONS (2)
  - BLOOD GLUCOSE DECREASED [None]
  - BLOOD GLUCOSE INCREASED [None]
